FAERS Safety Report 8288586-0 (Version None)
Quarter: 2012Q2

REPORT INFORMATION
  Report Type: 
  Country: None (occurrence: None)
  Receive Date: 20120416
  Receipt Date: 20120406
  Transmission Date: 20120825
  Serious: Yes (Hospitalization, Other)
  Sender: FDA-Public Use
  Company Number: US-MERCK-1112USA03035

PATIENT
  Age: 61 Year
  Sex: Female
  Weight: 66 kg

DRUGS (3)
  1. FOSAMAX [Suspect]
     Indication: OSTEOPOROSIS
     Route: 048
     Dates: end: 20050701
  2. FOSAMAX [Suspect]
     Route: 048
     Dates: start: 19991021
  3. BONIVA [Suspect]
     Indication: OSTEOPOROSIS
     Route: 048
     Dates: start: 20050928, end: 20051027

REACTIONS (46)
  - FOOT DEFORMITY [None]
  - DIVERTICULUM [None]
  - PNEUMONIA [None]
  - OVERWEIGHT [None]
  - BURSITIS [None]
  - OSTEONECROSIS [None]
  - CHONDROPATHY [None]
  - ARTHROPATHY [None]
  - OPEN ANGLE GLAUCOMA [None]
  - ASTHMA [None]
  - DYSPEPSIA [None]
  - SPINAL CORD COMPRESSION [None]
  - RESPIRATORY DISORDER [None]
  - TOOTH DISORDER [None]
  - DEAFNESS [None]
  - ADVERSE DRUG REACTION [None]
  - BRONCHOSPASM [None]
  - SCOLIOSIS [None]
  - NODULE [None]
  - VERTEBRAL FORAMINAL STENOSIS [None]
  - MUCOUS MEMBRANE DISORDER [None]
  - IRON DEFICIENCY ANAEMIA [None]
  - ANXIETY [None]
  - SYNOVITIS [None]
  - CHONDROSARCOMA [None]
  - OSTEOARTHRITIS [None]
  - ANGIOSARCOMA [None]
  - COUGH [None]
  - INTERVERTEBRAL DISC PROTRUSION [None]
  - DRUG INEFFECTIVE [None]
  - DEPRESSION [None]
  - RECTAL HAEMORRHAGE [None]
  - TRIGGER FINGER [None]
  - INTERVERTEBRAL DISC DEGENERATION [None]
  - HYPERSENSITIVITY [None]
  - BUNION [None]
  - GINGIVAL DISORDER [None]
  - MALAISE [None]
  - CERUMEN IMPACTION [None]
  - BONE LESION [None]
  - EPICONDYLITIS [None]
  - MYOFASCIAL PAIN SYNDROME [None]
  - SPINAL COLUMN STENOSIS [None]
  - ARTHRALGIA [None]
  - HAEMORRHOIDS [None]
  - ARTHRITIS INFECTIVE [None]
